FAERS Safety Report 24801856 (Version 1)
Quarter: 2025Q1

REPORT INFORMATION
  Report Type: Report from Study
  Country: US (occurrence: US)
  Receive Date: 20250102
  Receipt Date: 20250102
  Transmission Date: 20250409
  Serious: Yes (Other)
  Sender: JOHNSON AND JOHNSON
  Company Number: US-ABBVIE-6069648

PATIENT
  Age: 59 Year
  Sex: Male

DRUGS (1)
  1. IMBRUVICA [Suspect]
     Active Substance: IBRUTINIB
     Indication: Waldenstrom^s macroglobulinaemia
     Route: 048
     Dates: start: 20200812

REACTIONS (5)
  - Major depression [Recovered/Resolved]
  - Protein total decreased [Unknown]
  - Blood iron decreased [Unknown]
  - Tremor [Unknown]
  - Localised infection [Unknown]

NARRATIVE: CASE EVENT DATE: 20241201
